FAERS Safety Report 11683878 (Version 3)
Quarter: 2016Q3

REPORT INFORMATION
  Report Type: Spontaneous
  Country: US (occurrence: US)
  Receive Date: 20151029
  Receipt Date: 20160722
  Transmission Date: 20161109
  Serious: Yes (Hospitalization, Other)
  Sender: FDA-Public Use
  Company Number: US-009507513-1510USA014300

PATIENT
  Sex: Male
  Weight: 89.34 kg

DRUGS (8)
  1. FINASTERIDE. [Suspect]
     Active Substance: FINASTERIDE
     Indication: BENIGN PROSTATIC HYPERPLASIA
     Dosage: 5 MG, UNK
     Route: 065
  2. MONOPRIL [Concomitant]
     Active Substance: FOSINOPRIL SODIUM
     Indication: HYPERTENSION
     Dosage: UNK
     Route: 065
     Dates: start: 20010110, end: 200407
  3. PROSCAR [Suspect]
     Active Substance: FINASTERIDE
     Indication: BENIGN PROSTATIC HYPERPLASIA
     Dosage: 5 MG, UNK
     Route: 048
     Dates: start: 20010706, end: 200702
  4. TERAZOSIN [Concomitant]
     Active Substance: TERAZOSIN\TERAZOSIN HYDROCHLORIDE
     Indication: BENIGN PROSTATIC HYPERPLASIA
  5. RHINOCORT (BECLOMETHASONE DIPROPIONATE) [Concomitant]
     Active Substance: BECLOMETHASONE DIPROPIONATE
     Indication: HYPERSENSITIVITY
     Dosage: UNK
     Route: 045
     Dates: start: 20010426, end: 200305
  6. RHINOCORT (BECLOMETHASONE DIPROPIONATE) [Concomitant]
     Active Substance: BECLOMETHASONE DIPROPIONATE
     Indication: SINUS DISORDER
  7. TERAZOSIN [Concomitant]
     Active Substance: TERAZOSIN\TERAZOSIN HYDROCHLORIDE
     Indication: HYPERTENSION
     Dosage: UNK
     Route: 065
     Dates: start: 20010110, end: 200901
  8. GLYBURIDE. [Concomitant]
     Active Substance: GLYBURIDE
     Indication: TYPE 2 DIABETES MELLITUS
     Dosage: UNK
     Route: 065
     Dates: start: 20010116, end: 200609

REACTIONS (27)
  - Vertigo [Unknown]
  - Paranoia [Unknown]
  - Erectile dysfunction [Not Recovered/Not Resolved]
  - Prostate cancer [Unknown]
  - Transient ischaemic attack [Unknown]
  - Premature ejaculation [Unknown]
  - Stress urinary incontinence [Unknown]
  - Cerebrovascular accident [Unknown]
  - Inflammation [Unknown]
  - Anxiety [Unknown]
  - Prostatitis [Not Recovered/Not Resolved]
  - Gastrooesophageal reflux disease [Unknown]
  - Prostatic dysplasia [Unknown]
  - Myalgia [Unknown]
  - Pain [Unknown]
  - Hypertriglyceridaemia [Unknown]
  - Paraesthesia oral [Unknown]
  - Facial paralysis [Unknown]
  - Phimosis [Unknown]
  - Bladder neck obstruction [Unknown]
  - Drug ineffective [Unknown]
  - Paraesthesia [Unknown]
  - Prostatitis [Unknown]
  - Sexual dysfunction [Unknown]
  - Infection [Unknown]
  - Condition aggravated [Unknown]
  - Balanoposthitis [Unknown]

NARRATIVE: CASE EVENT DATE: 20020918
